FAERS Safety Report 4319566-5 (Version None)
Quarter: 2004Q1

REPORT INFORMATION
  Report Type: 
  Country: None (occurrence: None)
  Receive Date: 20040315
  Receipt Date: 20040224
  Transmission Date: 20041129
  Serious: Yes (Life-Threatening, Hospitalization)
  Sender: FDA-Public Use
  Company Number: A03200400562

PATIENT
  Age: 65 Year
  Sex: Male
  Weight: 104.7809 kg

DRUGS (8)
  1. ELOXATIN [Suspect]
     Indication: COLON CANCER METASTATIC
     Dosage: 85 MG/M2 Q2W INTRAVENOUS NOS
     Route: 042
     Dates: start: 20040112, end: 20040112
  2. ELOXATIN [Suspect]
     Indication: METASTASES TO LIVER
     Dosage: 85 MG/M2 Q2W INTRAVENOUS NOS
     Route: 042
     Dates: start: 20040112, end: 20040112
  3. FLUOROURACIL [Concomitant]
  4. LEUCOVORIN [Concomitant]
  5. ONDANSETRON HCL [Concomitant]
  6. DEXAMETHASONE [Concomitant]
  7. MAGNESIUM SULFATE [Concomitant]
  8. CALCIUM GLUCONATE [Concomitant]

REACTIONS (3)
  - ATRIAL FIBRILLATION [None]
  - ATRIAL FLUTTER [None]
  - VENTRICULAR TACHYCARDIA [None]
